FAERS Safety Report 8878918 (Version 1)
Quarter: 2012Q4

REPORT INFORMATION
  Report Type: 
  Country: US (occurrence: US)
  Receive Date: 20121026
  Receipt Date: 20121026
  Transmission Date: 20130627
  Serious: Yes (Other)
  Sender: FDA-Public Use
  Company Number: US-MYLANLABS-2012S1019563

PATIENT
  Sex: Female

DRUGS (1)
  1. CLONIDINE HYDROCHLORIDE [Suspect]
     Dates: start: 2010

REACTIONS (1)
  - Anaphylactic reaction [Recovered/Resolved]
